FAERS Safety Report 11772419 (Version 1)
Quarter: 2015Q4

REPORT INFORMATION
  Report Type: Report from Study
  Country: VE (occurrence: VE)
  Receive Date: 20151124
  Receipt Date: 20151124
  Transmission Date: 20160304
  Serious: Yes (Other)
  Sender: FDA-Public Use
  Company Number: PHHY2015VE153138

PATIENT
  Sex: Male

DRUGS (1)
  1. AFINITOR [Suspect]
     Active Substance: EVEROLIMUS
     Indication: COLON CANCER METASTATIC
     Dosage: 10 MG, QD
     Route: 048

REACTIONS (7)
  - Off label use [Unknown]
  - Spinal fracture [Unknown]
  - Malaise [Unknown]
  - Spinal pain [Unknown]
  - Eating disorder [Unknown]
  - Musculoskeletal chest pain [Unknown]
  - Peripheral swelling [Not Recovered/Not Resolved]
